FAERS Safety Report 20027586 (Version 4)
Quarter: 2022Q2

REPORT INFORMATION
  Report Type: Spontaneous
  Country: GB (occurrence: GB)
  Receive Date: 20211103
  Receipt Date: 20220408
  Transmission Date: 20220721
  Serious: Yes (Disabling, Other)
  Sender: FDA-Public Use
  Company Number: GB-NOVPHSZ-PHHY2019GB155758

PATIENT
  Age: 55 Year
  Sex: Male
  Weight: 63.53 kg

DRUGS (15)
  1. OMEPRAZOLE [Suspect]
     Active Substance: OMEPRAZOLE
     Indication: Gastrooesophageal reflux disease
     Route: 048
     Dates: start: 2002, end: 2017
  2. OMEPRAZOLE [Suspect]
     Active Substance: OMEPRAZOLE
     Route: 065
  3. OMEPRAZOLE [Suspect]
     Active Substance: OMEPRAZOLE
     Route: 048
     Dates: start: 1992, end: 201802
  4. OMEPRAZOLE [Suspect]
     Active Substance: OMEPRAZOLE
     Route: 065
     Dates: start: 201812
  5. OMEPRAZOLE [Suspect]
     Active Substance: OMEPRAZOLE
     Route: 048
     Dates: start: 2019
  6. OMEPRAZOLE [Suspect]
     Active Substance: OMEPRAZOLE
     Route: 048
     Dates: start: 1992, end: 200202
  7. LEUCOVORIN CALCIUM [Suspect]
     Active Substance: LEUCOVORIN CALCIUM
     Indication: Cardiovascular disorder
     Route: 065
  8. HYDROXOCOBALAMIN [Suspect]
     Active Substance: HYDROXOCOBALAMIN
     Indication: Product used for unknown indication
     Dosage: UNK (STANDARD LOADING DOSE)
     Route: 030
     Dates: start: 201901
  9. HYDROXOCOBALAMIN [Suspect]
     Active Substance: HYDROXOCOBALAMIN
     Dosage: UNK (TOP UP DOSE)
     Route: 030
     Dates: start: 201904
  10. ADCAL [Concomitant]
     Indication: Osteoporosis
     Dates: start: 201802
  11. ASPIRIN [Concomitant]
     Active Substance: ASPIRIN
     Indication: Cardiovascular event prophylaxis
     Dates: start: 2001
  12. FOLIC ACID [Concomitant]
     Active Substance: FOLIC ACID
     Indication: Cardiovascular event prophylaxis
     Dates: start: 2004
  13. RISEDRONATE SODIUM [Concomitant]
     Active Substance: RISEDRONATE SODIUM
     Indication: Osteoporosis
     Dates: start: 201802
  14. ROPINIROLE [Concomitant]
     Active Substance: ROPINIROLE
     Indication: Periodic limb movement disorder
     Route: 065
     Dates: start: 2002
  15. SIMVASTATIN [Concomitant]
     Active Substance: SIMVASTATIN
     Indication: Cardiovascular event prophylaxis
     Dates: start: 2004

REACTIONS (20)
  - Neuropathy peripheral [Not Recovered/Not Resolved]
  - Spinal compression fracture [Unknown]
  - Restless legs syndrome [Not Recovered/Not Resolved]
  - Malabsorption [Not Recovered/Not Resolved]
  - Fall [Unknown]
  - Ulna fracture [Unknown]
  - Peripheral sensorimotor neuropathy [Unknown]
  - Neuropathy vitamin B12 deficiency [Not Recovered/Not Resolved]
  - Neuropathy vitamin B12 deficiency [Not Recovered/Not Resolved]
  - Osteoporosis [Not Recovered/Not Resolved]
  - Incorrect product administration duration [Unknown]
  - Off label use [Unknown]
  - Exercise tolerance decreased [Unknown]
  - Hypoaesthesia [Unknown]
  - Balance disorder [Unknown]
  - Sensory loss [Unknown]
  - Asthenia [Unknown]
  - Hand deformity [Unknown]
  - Somnolence [Unknown]
  - Treatment failure [Unknown]

NARRATIVE: CASE EVENT DATE: 19920101
